FAERS Safety Report 9847642 (Version 2)
Quarter: 2014Q1

REPORT INFORMATION
  Report Type: Spontaneous
  Country: US (occurrence: US)
  Receive Date: 20140128
  Receipt Date: 20140211
  Transmission Date: 20141002
  Serious: Yes (Hospitalization)
  Sender: FDA-Public Use
  Company Number: US-ROCHE-1334504

PATIENT
  Age: 87 Year
  Sex: Male

DRUGS (2)
  1. AVASTIN [Suspect]
     Indication: COLORECTAL CANCER METASTATIC
     Dosage: 2 ROUNDS RECEIVED,
     Route: 065
     Dates: start: 201312
  2. AVASTIN [Suspect]
     Dosage: ROUND 2
     Route: 065
     Dates: start: 20131226

REACTIONS (11)
  - General physical health deterioration [Not Recovered/Not Resolved]
  - Immune system disorder [Not Recovered/Not Resolved]
  - Clostridium difficile infection [Recovering/Resolving]
  - Malaise [Not Recovered/Not Resolved]
  - Lip haemorrhage [Not Recovered/Not Resolved]
  - Gastrointestinal haemorrhage [Not Recovered/Not Resolved]
  - Speech disorder [Not Recovered/Not Resolved]
  - Pharyngeal disorder [Not Recovered/Not Resolved]
  - Sepsis [Not Recovered/Not Resolved]
  - Diarrhoea [Not Recovered/Not Resolved]
  - Mucosal inflammation [Recovering/Resolving]
